FAERS Safety Report 9295527 (Version 1)
Quarter: 2013Q1

REPORT INFORMATION
  Report Type: Spontaneous
  Country: US (occurrence: None)
  Receive Date: 20121227
  Receipt Date: 20121227
  Transmission Date: 20140127
  Serious: No
  Sender: FDA-Public Use
  Company Number: PHEH2012US021217

PATIENT
  Age: 68 Year
  Sex: Female
  Weight: 68 kg

DRUGS (11)
  1. AFINITOR [Suspect]
     Indication: BREAST CANCER
     Route: 048
  2. HERPECIN-L [Concomitant]
  3. EXEMESTANT (EXEMESTANE) [Concomitant]
  4. PROTONIX (PANTOPRAZOLE SODIUM SESQUIHYDRATE) [Concomitant]
  5. TOPROL XL (METOPROLOL SUCCINATE) [Concomitant]
  6. PROZAC (FLUOXETINE HYDROCHLORIDE) [Concomitant]
  7. ROCALTROL (CALCITRIOL) [Concomitant]
  8. CITRACAL (CALCIUM CITRATE) [Concomitant]
  9. VITAMIN D (ERGOCALCIFEROL) [Concomitant]
  10. GABAPENTIN (GABAPENTIN) [Concomitant]
  11. VITAMIN B COMPLEX (VITAMIN B COMPLEX) [Concomitant]

REACTIONS (1)
  - Tremor [None]
